FAERS Safety Report 8096510-9 (Version None)
Quarter: 2012Q1

REPORT INFORMATION
  Report Type: 
  Country: None (occurrence: None)
  Receive Date: 20120129
  Receipt Date: 20111205
  Transmission Date: 20120608
  Serious: No
  Sender: FDA-Public Use
  Company Number: US-ABBOTT-11P-163-0880907-00

PATIENT
  Age: 50 Year
  Sex: Female

DRUGS (7)
  1. ACTONEL [Concomitant]
     Indication: BONE DISORDER
  2. DICLOFENAC [Concomitant]
     Indication: INFLAMMATION
  3. SRONYX BIRTH CONTROL PILL [Concomitant]
     Indication: PRODUCT USED FOR UNKNOWN INDICATION
     Dosage: 1 PILL DAILY
  4. HUMIRA [Suspect]
     Indication: RHEUMATOID ARTHRITIS
     Dates: start: 20110801, end: 20111114
  5. METHOTREXATE [Concomitant]
     Indication: PRODUCT USED FOR UNKNOWN INDICATION
     Dosage: 7 PILLS ONCE PER WEEK
  6. DICLOFENAC [Concomitant]
     Indication: PAIN
     Dosage: 1-2 TIMES PER DAY AFTER MEALS
  7. MULTI-VITAMIN [Concomitant]
     Indication: PRODUCT USED FOR UNKNOWN INDICATION
     Dosage: 1 PILL TWICE DAILY

REACTIONS (4)
  - ARTHRALGIA [None]
  - NODULE [None]
  - SCAB [None]
  - WOUND SECRETION [None]
